FAERS Safety Report 17021231 (Version 1)
Quarter: 2019Q4

REPORT INFORMATION
  Report Type: Spontaneous
  Country: US (occurrence: US)
  Receive Date: 20191007
  Receipt Date: 20191007
  Transmission Date: 20200122
  Serious: Yes (Hospitalization)
  Sender: FDA-Public Use
  Company Number: None

PATIENT
  Age: 88 Year
  Sex: Male

DRUGS (3)
  1. BICALUTAMIDE. [Concomitant]
     Active Substance: BICALUTAMIDE
  2. DIOVAN [Concomitant]
     Active Substance: VALSARTAN
  3. LUPRON [Suspect]
     Active Substance: LEUPROLIDE ACETATE
     Indication: PROSTATE CANCER
     Dosage: ?          OTHER DOSE:22.5 MG;OTHER FREQUENCY:EVERY 3 MONTHS;?
     Route: 041
     Dates: start: 20110610

REACTIONS (1)
  - Hip arthroplasty [None]
